FAERS Safety Report 13999159 (Version 1)
Quarter: 2017Q3

REPORT INFORMATION
  Report Type: Spontaneous
  Country: CZ (occurrence: CZ)
  Receive Date: 20170922
  Receipt Date: 20170922
  Transmission Date: 20171128
  Serious: Yes (Other)
  Sender: FDA-Public Use
  Company Number: CZ-TEVA-804928ROM

PATIENT
  Age: 65 Year
  Sex: Female

DRUGS (2)
  1. METFORMIN [Suspect]
     Active Substance: METFORMIN HYDROCHLORIDE
     Dosage: 1000 MILLIGRAM DAILY;
     Route: 048
     Dates: start: 201705
  2. METFORMIN [Suspect]
     Active Substance: METFORMIN HYDROCHLORIDE
     Indication: TYPE 2 DIABETES MELLITUS
     Dosage: 500 MILLIGRAM DAILY;
     Route: 048
     Dates: end: 201705

REACTIONS (2)
  - Glycosylated haemoglobin increased [Not Recovered/Not Resolved]
  - Drug ineffective [Unknown]

NARRATIVE: CASE EVENT DATE: 2017
